FAERS Safety Report 5604279-X (Version None)
Quarter: 2008Q1

REPORT INFORMATION
  Report Type: 
  Country: None (occurrence: None)
  Receive Date: 20080128
  Receipt Date: 20080121
  Transmission Date: 20080703
  Serious: Yes (Life-Threatening)
  Sender: FDA-Public Use
  Company Number: ES-AVENTIS-200810751GDDC

PATIENT
  Age: 72 Year
  Sex: Male

DRUGS (14)
  1. TARGOCID [Suspect]
     Route: 042
     Dates: start: 20071008, end: 20071015
  2. LANTUS [Suspect]
     Route: 058
     Dates: start: 20070911
  3. CLEXANE [Suspect]
     Route: 058
     Dates: start: 20070925
  4. OMEPRAZOLE [Suspect]
     Route: 048
     Dates: start: 20070925
  5. ESPIDIFEN [Suspect]
     Route: 048
     Dates: start: 20071008, end: 20071016
  6. CAPOTEN [Suspect]
     Route: 048
     Dates: start: 20070927, end: 20070927
  7. MINODIAB [Suspect]
     Route: 048
     Dates: start: 20070101, end: 20071011
  8. EFFERALGAN                         /00020001/ [Suspect]
     Route: 048
     Dates: start: 20070929, end: 20070930
  9. LORAZEPAM [Suspect]
     Route: 048
     Dates: start: 20070925, end: 20071015
  10. CEFTRIAXONE [Suspect]
     Route: 058
     Dates: start: 20071008, end: 20071015
  11. DIANBEN [Suspect]
     Route: 048
     Dates: start: 20070101
  12. ARTROTEC                           /01182401/ [Suspect]
     Dosage: DOSE QUANTITY: 1
     Route: 048
     Dates: start: 20071001, end: 20071008
  13. TRAMADOL HCL [Suspect]
     Route: 048
     Dates: start: 20070929, end: 20070930
  14. ADIRO [Concomitant]
     Route: 048
     Dates: end: 20070925

REACTIONS (1)
  - NEUTROPENIA [None]
